FAERS Safety Report 9883714 (Version 1)
Quarter: 2014Q1

REPORT INFORMATION
  Report Type: Spontaneous
  Country: US (occurrence: US)
  Receive Date: 20140210
  Receipt Date: 20140210
  Transmission Date: 20141002
  Serious: No
  Sender: FDA-Public Use
  Company Number: US-009507513-1402USA002426

PATIENT
  Age: 25 Year
  Sex: Female
  Weight: 81.63 kg

DRUGS (2)
  1. NUVARING [Suspect]
     Indication: CONTRACEPTION
     Dosage: STRENGTH: 0.015/ 0.12, DOSE: 1 RING
     Route: 067
     Dates: start: 20140131, end: 20140202
  2. NUVARING [Suspect]
     Dosage: STRENGTH: 0.015/ 0.12, DOSE: 1 RING
     Route: 067
     Dates: start: 200902

REACTIONS (2)
  - Discomfort [Recovering/Resolving]
  - Product quality issue [Unknown]
